FAERS Safety Report 9890087 (Version 1)
Quarter: 2014Q1

REPORT INFORMATION
  Report Type: Spontaneous
  Country: US (occurrence: US)
  Receive Date: 20140212
  Receipt Date: 20140212
  Transmission Date: 20141002
  Serious: No
  Sender: FDA-Public Use
  Company Number: US-BIOGENIDEC-2014BI011196

PATIENT
  Sex: Female
  Weight: 58 kg

DRUGS (3)
  1. TECFIDERA [Suspect]
     Indication: MULTIPLE SCLEROSIS
     Route: 048
     Dates: start: 201310
  2. THALOMID [Concomitant]
  3. PRISTIQ [Concomitant]

REACTIONS (2)
  - Stomatitis [Unknown]
  - Flushing [Unknown]
